FAERS Safety Report 8564675-8 (Version None)
Quarter: 2012Q3

REPORT INFORMATION
  Report Type: 
  Country: None (occurrence: None)
  Receive Date: 20120803
  Receipt Date: 20120730
  Transmission Date: 20120928
  Serious: Yes (Other)
  Sender: FDA-Public Use
  Company Number: RO-009507513-1208ROM000193

PATIENT

DRUGS (1)
  1. JANUVIA [Suspect]

REACTIONS (1)
  - NEOPLASM MALIGNANT [None]
